FAERS Safety Report 16712705 (Version 1)
Quarter: 2019Q3

REPORT INFORMATION
  Report Type: Report from Study
  Country: None (occurrence: US)
  Receive Date: 20190816
  Receipt Date: 20190816
  Transmission Date: 20191004
  Serious: Yes (Hospitalization, Other)
  Sender: FDA-Public Use
  Company Number: US-ABBVIE-19K-163-2879251-00

PATIENT
  Sex: Female
  Weight: 71.73 kg

DRUGS (2)
  1. HUMIRA [Suspect]
     Active Substance: ADALIMUMAB
     Indication: CROHN^S DISEASE
     Route: 058
     Dates: start: 20150512
  2. HUMIRA [Suspect]
     Active Substance: ADALIMUMAB
     Route: 058

REACTIONS (8)
  - Extra dose administered [Unknown]
  - Procedural complication [Unknown]
  - Bone density decreased [Unknown]
  - Femur fracture [Unknown]
  - Diarrhoea [Not Recovered/Not Resolved]
  - Skin laceration [Recovering/Resolving]
  - Lower limb fracture [Unknown]
  - Vomiting [Unknown]

NARRATIVE: CASE EVENT DATE: 2015
